FAERS Safety Report 9472442 (Version 2)
Quarter: 2013Q4

REPORT INFORMATION
  Report Type: Spontaneous
  Country: CH (occurrence: CH)
  Receive Date: 20130823
  Receipt Date: 20131002
  Transmission Date: 20140711
  Serious: Yes (Other)
  Sender: FDA-Public Use
  Company Number: CH-PFIZER INC-2013241992

PATIENT
  Age: 50 Year
  Sex: Male
  Weight: 153.6 kg

DRUGS (7)
  1. ALDACTONE [Suspect]
     Dosage: 300 MG, 1X/DAY
     Route: 048
  2. VANCOCIN [Suspect]
     Indication: SEPSIS
     Dosage: 4000 MG, 1 PER 12 HOURS
     Route: 041
     Dates: start: 20130709, end: 20130710
  3. VANCOCIN [Suspect]
     Dosage: 2000 MG, 1 PER 12 HOURS
     Route: 041
     Dates: end: 20130710
  4. FLOXAPEN [Suspect]
     Indication: SEPSIS
     Dosage: UNK
     Route: 041
     Dates: start: 20130709
  5. ESOMEP MUPS [Suspect]
     Dosage: 40 MG, 2X/DAY
     Route: 048
  6. METHADONE [Concomitant]
     Route: 048
  7. FRAGMIN [Concomitant]
     Dosage: 10000 IU, 1X/DAY
     Route: 058

REACTIONS (1)
  - Renal failure [Not Recovered/Not Resolved]
